FAERS Safety Report 6278208-2 (Version None)
Quarter: 2009Q3

REPORT INFORMATION
  Report Type: 
  Country: None (occurrence: None)
  Receive Date: 20090722
  Receipt Date: 20070306
  Transmission Date: 20100115
  Serious: Yes (Hospitalization, Other)
  Sender: FDA-Public Use
  Company Number: DE-PFIZER INC-2007017300

PATIENT
  Age: 44 Year

DRUGS (4)
  1. LYRICA [Suspect]
     Indication: MULTIPLE SCLEROSIS
     Dosage: 300 MG, 1X/DAY
     Route: 048
     Dates: start: 20070201
  2. LYRICA [Suspect]
     Indication: NEURALGIA
  3. OMEPRAZOL [Concomitant]
  4. CORTISONE [Concomitant]

REACTIONS (2)
  - HEPATIC ENZYME INCREASED [None]
  - HEPATOTOXICITY [None]
